FAERS Safety Report 11144131 (Version 1)
Quarter: 2015Q2

REPORT INFORMATION
  Report Type: Spontaneous
  Country: GB (occurrence: GB)
  Receive Date: 20150526
  Receipt Date: 20150526
  Transmission Date: 20150821
  Serious: Yes (Disabling, Other)
  Sender: FDA-Public Use
  Company Number: GB-TEVA-563498ACC

PATIENT
  Age: 72 Year
  Sex: Female
  Weight: 53.52 kg

DRUGS (6)
  1. LETROZOLE. [Suspect]
     Active Substance: LETROZOLE
     Indication: BREAST CANCER
     Route: 048
     Dates: start: 201403, end: 20150415
  2. COD LIVER OIL [Concomitant]
     Active Substance: COD LIVER OIL
     Dosage: 1000 MILLIGRAM DAILY;
  3. SELENIUM [Concomitant]
     Active Substance: SELENIUM
     Dosage: 200 MICROGRAM DAILY;
  4. VITAMIN A [Concomitant]
     Active Substance: VITAMIN A
  5. VITAMIN E [Concomitant]
     Active Substance: .ALPHA.-TOCOPHEROL
  6. VITAMIN C [Concomitant]
     Active Substance: ASCORBIC ACID

REACTIONS (5)
  - Discomfort [Recovering/Resolving]
  - Mobility decreased [Recovering/Resolving]
  - Myalgia [Recovering/Resolving]
  - Arthralgia [Recovering/Resolving]
  - Dysstasia [Recovering/Resolving]

NARRATIVE: CASE EVENT DATE: 201403
